FAERS Safety Report 14919644 (Version 4)
Quarter: 2019Q2

REPORT INFORMATION
  Report Type: Report from Study
  Country: US (occurrence: US)
  Receive Date: 20180521
  Receipt Date: 20190515
  Transmission Date: 20190711
  Serious: Yes (Hospitalization)
  Sender: FDA-Public Use
  Company Number: PHHO2016US006521

PATIENT
  Age: 65 Year
  Sex: Male
  Weight: 139.3 kg

DRUGS (8)
  1. DEXAMETHASONE. [Suspect]
     Active Substance: DEXAMETHASONE
     Dosage: 12 MG (DAY 1,2,4,5,8,9,11,12 OF 21 DAY CYCLE)
     Route: 048
     Dates: start: 20160712
  2. LENALIDOMIDE [Suspect]
     Active Substance: LENALIDOMIDE
     Dosage: 15 MG (DAYS 1 TO 14 OF 21 DAY CYCLE)
     Route: 048
     Dates: start: 20160712
  3. DEXAMETHASONE. [Suspect]
     Active Substance: DEXAMETHASONE
     Indication: PLASMA CELL MYELOMA
     Dosage: 12 MG (DAY 1,2,4,5,8,9,11,12 OF 21 DAY CYCLE)
     Route: 048
     Dates: start: 20151214, end: 20160628
  4. FARYDAK [Suspect]
     Active Substance: PANOBINOSTAT
     Dosage: 10 MG (DAYS 1,3,5,8,10 OF 21 DAY CYCLE)
     Route: 048
     Dates: start: 20160712
  5. BORTEZOMIB. [Suspect]
     Active Substance: BORTEZOMIB
     Dosage: 1.0 MG/M2 (DAYS 1,4,8,11 OF 21 DAY CYCLE)
     Route: 058
     Dates: start: 20160712
  6. FARYDAK [Suspect]
     Active Substance: PANOBINOSTAT
     Indication: PLASMA CELL MYELOMA
     Dosage: 10 MG (DAYS 1,3,5,8,10 OF 21 DAY CYCLE)
     Route: 048
     Dates: start: 20151214, end: 20160628
  7. BORTEZOMIB. [Suspect]
     Active Substance: BORTEZOMIB
     Indication: PLASMA CELL MYELOMA
     Dosage: 1.0 MG/M2 (DAYS 1,4,8,11 OF 21 DAY CYCLE)
     Route: 058
     Dates: start: 20151214, end: 20160628
  8. LENALIDOMIDE [Suspect]
     Active Substance: LENALIDOMIDE
     Indication: PLASMA CELL MYELOMA
     Dosage: 15 MG (DAYS 1 TO 14 OF 21 DAY CYCLE)
     Route: 048
     Dates: start: 20151214, end: 20160628

REACTIONS (3)
  - Diarrhoea [Recovered/Resolved]
  - Hypovolaemia [Recovered/Resolved]
  - Pulmonary embolism [Recovered/Resolved]

NARRATIVE: CASE EVENT DATE: 20160628
